FAERS Safety Report 6055657-9 (Version None)
Quarter: 2009Q1

REPORT INFORMATION
  Report Type: 
  Country: None (occurrence: None)
  Receive Date: 20090123
  Receipt Date: 20090106
  Transmission Date: 20090719
  Serious: Yes (Other)
  Sender: FDA-Public Use
  Company Number: CF414354

PATIENT
  Sex: Male

DRUGS (1)
  1. BLINK TEARS LUBRICATING EYE DROPS [Suspect]
     Indication: EYE PRURITUS
     Dosage: 2 VIALS  OVER 24 HOURS/EYE
     Dates: start: 20090104, end: 20090105

REACTIONS (1)
  - EYE INFECTION [None]
